FAERS Safety Report 24720983 (Version 1)
Quarter: 2024Q4

REPORT INFORMATION
  Report Type: Spontaneous
  Country: US (occurrence: US)
  Receive Date: 20241211
  Receipt Date: 20241211
  Transmission Date: 20250115
  Serious: Yes (Other)
  Sender: AMGEN
  Company Number: US-AMGEN-USASP2024239467

PATIENT

DRUGS (2)
  1. CARFILZOMIB [Suspect]
     Active Substance: CARFILZOMIB
     Indication: Acute myeloid leukaemia refractory
     Dosage: UNK (CFZ WAS GIVEN ON DAYS 1, 2, 8, 9, 15, 16, 22, AND 23 IN A 28-DAY CYCLE AT ESCALATING DOSES OF 3
     Route: 065
  2. CARFILZOMIB [Suspect]
     Active Substance: CARFILZOMIB
     Indication: Acute lymphocytic leukaemia

REACTIONS (7)
  - Activated partial thromboplastin time prolonged [Unknown]
  - Haematoma [Unknown]
  - Infection [Unknown]
  - Cardiac failure congestive [Unknown]
  - Hypophosphataemia [Unknown]
  - Haemorrhage intracranial [Unknown]
  - Dyspnoea [Unknown]
